FAERS Safety Report 6425478-3 (Version None)
Quarter: 2009Q4

REPORT INFORMATION
  Report Type: 
  Country: None (occurrence: None)
  Receive Date: 20091103
  Receipt Date: 20091028
  Transmission Date: 20100525
  Serious: Yes (Other)
  Sender: FDA-Public Use
  Company Number: DE-PFIZER INC-2009289623

PATIENT
  Age: 68 Year
  Sex: Female

DRUGS (6)
  1. TOVIAZ [Suspect]
     Dosage: UNK
     Route: 048
     Dates: start: 20081219, end: 20090315
  2. DICLO-DIVIDO [Concomitant]
  3. ACC LONG [Concomitant]
  4. ZOLPIDEM [Concomitant]
  5. RAMIPRIL [Concomitant]
  6. BISOPROLOL [Concomitant]

REACTIONS (1)
  - GASTROINTESTINAL HAEMORRHAGE [None]
